FAERS Safety Report 9196059 (Version 1)
Quarter: 2013Q1

REPORT INFORMATION
  Report Type: Spontaneous
  Country: NL (occurrence: NL)
  Receive Date: 20130328
  Receipt Date: 20130328
  Transmission Date: 20140127
  Serious: Yes (Death)
  Sender: FDA-Public Use
  Company Number: PHHY2013NL029946

PATIENT
  Sex: Female

DRUGS (4)
  1. ZOMETA [Suspect]
     Indication: BREAST CANCER METASTATIC
     Dosage: 4 MG/100ML,1X PER 42 DAYS
     Route: 042
  2. ZOMETA [Suspect]
     Dosage: 4 MG/100 ML,1X PER 42 DAYS
     Route: 042
     Dates: start: 20100122
  3. ZOMETA [Suspect]
     Dosage: 4 MG/100 ML,1X PER 42 DAYS
     Route: 042
     Dates: start: 20130107
  4. ZOMETA [Suspect]
     Dosage: 4 MG/100 ML,1X PER 42 DAYS
     Route: 042
     Dates: start: 20130215

REACTIONS (1)
  - Euthanasia [Fatal]
